FAERS Safety Report 23808176 (Version 1)
Quarter: 2024Q2

REPORT INFORMATION
  Report Type: Spontaneous
  Country: US (occurrence: None)
  Receive Date: 20240501
  Receipt Date: 20240501
  Transmission Date: 20240715
  Serious: Yes (Hospitalization, Other)
  Sender: FDA-Public Use
  Company Number: None

PATIENT
  Sex: 0

DRUGS (1)
  1. CANNABIDIOL\HERBALS [Suspect]
     Active Substance: CANNABIDIOL\HERBALS

REACTIONS (3)
  - Product complaint [None]
  - Nonspecific reaction [None]
  - Obstructive airways disorder [None]

NARRATIVE: CASE EVENT DATE: 20240426
